FAERS Safety Report 6803751-4 (Version None)
Quarter: 2010Q2

REPORT INFORMATION
  Report Type: 
  Country: None (occurrence: None)
  Receive Date: 20100628
  Receipt Date: 20100615
  Transmission Date: 20101027
  Serious: Yes (Hospitalization)
  Sender: FDA-Public Use
  Company Number: US-SANOFI-AVENTIS-2010SA019663

PATIENT
  Age: 86 Year
  Sex: Male

DRUGS (4)
  1. SOLOSTAR [Suspect]
     Indication: DIABETES MELLITUS
  2. LANTUS [Suspect]
     Indication: DIABETES MELLITUS
     Dosage: DOSE:30 UNIT(S)
     Route: 058
  3. HUMALOG [Suspect]
     Dosage: DOSE:30 UNIT(S)
     Route: 058
  4. HUMALOG [Suspect]
     Dosage: REGULAR DOSE AND FREQUENCY NOT PROVIDED.

REACTIONS (2)
  - HOSPITALISATION [None]
  - WRONG DRUG ADMINISTERED [None]
